FAERS Safety Report 4862164-5 (Version None)
Quarter: 2005Q4

REPORT INFORMATION
  Report Type: 
  Country: None (occurrence: None)
  Receive Date: 20051201
  Receipt Date: 20050825
  Transmission Date: 20060501
  Serious: No
  Sender: FDA-Public Use
  Company Number: 2005PV001560

PATIENT
  Sex: Female

DRUGS (4)
  1. BYETTA [Suspect]
     Indication: DIABETES MELLITUS
     Dosage: UNKNOWN; SC
     Route: 058
     Dates: end: 20050101
  2. BYETTA [Suspect]
     Indication: DIABETES MELLITUS
     Dosage: UNKNOWN; SC
     Route: 058
     Dates: end: 20050101
  3. MULTIPLE ORAL DIABETIC AGENTS [Concomitant]
  4. INSULIN [Concomitant]

REACTIONS (1)
  - ABDOMINAL PAIN [None]
